FAERS Safety Report 9680089 (Version 2)
Quarter: 2013Q4

REPORT INFORMATION
  Report Type: Report from Study
  Country: DE (occurrence: DE)
  Receive Date: 20131111
  Receipt Date: 20131111
  Transmission Date: 20140711
  Serious: Yes (Death)
  Sender: FDA-Public Use
  Company Number: DE-ROCHE-1285168

PATIENT
  Age: 63 Year
  Sex: Female
  Weight: 44 kg

DRUGS (1)
  1. METHOXY POLYETHYLENE GLYCOL-EPOETIN BETA [Suspect]
     Indication: NEPHROGENIC ANAEMIA
     Dosage: LAST DOSE PRIOR TO SAE ON 29/DEC/2012
     Route: 042
     Dates: start: 20100813

REACTIONS (1)
  - Pulmonary embolism [Fatal]
